FAERS Safety Report 9639340 (Version 2)
Quarter: 2014Q1

REPORT INFORMATION
  Report Type: Report from Study
  Country: GB (occurrence: GB)
  Receive Date: 20131022
  Receipt Date: 20140108
  Transmission Date: 20141002
  Serious: Yes (Hospitalization)
  Sender: FDA-Public Use
  Company Number: GB-ROCHE-1291083

PATIENT
  Age: 84 Year
  Sex: Female

DRUGS (5)
  1. RANIBIZUMAB [Suspect]
     Indication: AGE-RELATED MACULAR DEGENERATION
     Route: 065
     Dates: start: 20100625
  2. ASPIRIN [Concomitant]
     Route: 065
     Dates: start: 20030920
  3. CANDESARTAN [Concomitant]
     Route: 065
     Dates: start: 20110412
  4. BECLOMETASONE [Concomitant]
     Route: 065
     Dates: start: 20120705
  5. ATORVASTATIN [Concomitant]
     Route: 065
     Dates: start: 20060302

REACTIONS (8)
  - Circulatory collapse [Recovered/Resolved]
  - Atrioventricular block first degree [Unknown]
  - Lung infiltration [Recovered/Resolved]
  - Pneumothorax [Recovered/Resolved]
  - Lower respiratory tract infection [Recovered/Resolved]
  - Presyncope [Recovered/Resolved]
  - Syncope [Recovered/Resolved]
  - Dizziness [Recovered/Resolved]
